FAERS Safety Report 10800794 (Version 2)
Quarter: 2015Q1

REPORT INFORMATION
  Report Type: Spontaneous
  Country: US (occurrence: US)
  Receive Date: 20150216
  Receipt Date: 20150216
  Transmission Date: 20150721
  Serious: No
  Sender: FDA-Public Use
  Company Number: US-ALLERGAN-1425846US

PATIENT
  Sex: Female

DRUGS (3)
  1. LOTEMAX [Concomitant]
     Active Substance: LOTEPREDNOL ETABONATE
  2. REFRESH [Concomitant]
     Active Substance: UNSPECIFIED INGREDIENT
     Route: 047
  3. RESTASIS [Suspect]
     Active Substance: CYCLOSPORINE
     Indication: DRY EYE
     Dosage: 2 GTT, BID
     Route: 047
     Dates: start: 2013

REACTIONS (2)
  - Foreign body in eye [Unknown]
  - Eyelid operation [Unknown]
